FAERS Safety Report 4949229-4 (Version None)
Quarter: 2006Q1

REPORT INFORMATION
  Report Type: 
  Country: None (occurrence: None)
  Receive Date: 20060321
  Receipt Date: 20020222
  Transmission Date: 20060701
  Serious: Yes (Death)
  Sender: FDA-Public Use
  Company Number: US-MERCK-0202USA02433

PATIENT
  Age: 59 Year
  Sex: Female
  Weight: 59 kg

DRUGS (13)
  1. VIOXX [Suspect]
     Indication: OSTEOARTHRITIS
     Route: 048
     Dates: start: 20000329, end: 20000501
  2. VIOXX [Suspect]
     Route: 048
     Dates: start: 20000501
  3. VIOXX [Suspect]
     Indication: ARTHRALGIA
     Route: 048
     Dates: start: 20000329, end: 20000501
  4. VIOXX [Suspect]
     Route: 048
     Dates: start: 20000501
  5. ARMOUR THYROID TABLETS [Concomitant]
     Route: 065
  6. ACETAMINOPHEN AND CODEINE [Concomitant]
     Route: 065
  7. NORVASC [Concomitant]
     Route: 065
  8. VASOTEC RPD [Concomitant]
     Indication: HYPERTENSION
     Route: 048
  9. GLUCOPHAGE [Concomitant]
     Route: 065
  10. HYTRIN [Concomitant]
     Indication: HYPERTENSION
     Route: 065
  11. TRIMOX [Concomitant]
     Route: 065
     Dates: start: 20010123
  12. METRONIDAZOLE [Concomitant]
     Route: 065
     Dates: start: 20010123
  13. ASPIRIN [Concomitant]
     Indication: PAIN
     Route: 065

REACTIONS (23)
  - ACUTE MYOCARDIAL INFARCTION [None]
  - AORTIC CALCIFICATION [None]
  - ARTERIOSCLEROSIS [None]
  - ARTERIOSCLEROSIS CORONARY ARTERY [None]
  - CARDIOMEGALY [None]
  - CONTUSION [None]
  - CORONARY ARTERY STENOSIS [None]
  - CORONARY ARTERY THROMBOSIS [None]
  - DIABETES MELLITUS INADEQUATE CONTROL [None]
  - HEPATIC CONGESTION [None]
  - HEPATIC STEATOSIS [None]
  - HEPATOMEGALY [None]
  - MYOCARDIAL RUPTURE [None]
  - NEPHROSCLEROSIS [None]
  - OEDEMA [None]
  - OSTEOPOROSIS [None]
  - PERICARDIAL HAEMORRHAGE [None]
  - POLYCYSTIC OVARIES [None]
  - PULMONARY CONGESTION [None]
  - RENAL DISORDER [None]
  - ROAD TRAFFIC ACCIDENT [None]
  - SKIN DEPIGMENTATION [None]
  - SPLEEN CONGESTION [None]
